FAERS Safety Report 7679370-7 (Version None)
Quarter: 2011Q3

REPORT INFORMATION
  Report Type: 
  Country: None (occurrence: None)
  Receive Date: 20110812
  Receipt Date: 20110729
  Transmission Date: 20111222
  Serious: Yes (Other)
  Sender: FDA-Public Use
  Company Number: PL-MYLANLABS-2011S1015670

PATIENT
  Age: 75 Year
  Sex: Male

DRUGS (10)
  1. GLIBETIC /00145301/ [Concomitant]
     Route: 065
  2. PRESTARIUM /00790701/ [Concomitant]
     Route: 065
  3. TRAZODONE HCL [Interacting]
     Dosage: INCREASED TO 75 MG/DAY OVER 3 DAYS
     Route: 065
  4. RAWEL [Concomitant]
     Route: 065
  5. HALOPERIDOL [Suspect]
     Dosage: 2 MG/DAY
     Route: 065
  6. ACARD [Concomitant]
     Route: 065
  7. METFORMIN HCL [Concomitant]
     Route: 065
  8. CLONAZEPAM [Concomitant]
     Dosage: 1-2 MG/DAY AS NEEDED
     Route: 065
  9. PROMAZINE HYDROCHLORIDE [Interacting]
     Dosage: 100 MG/DAY
     Route: 065
  10. TRAZODONE HCL [Interacting]
     Dosage: 37.5 MG/DAY
     Route: 065

REACTIONS (3)
  - DRUG INTERACTION [None]
  - SEROTONIN SYNDROME [None]
  - PARKINSONISM [None]
